FAERS Safety Report 13028221 (Version 1)
Quarter: 2016Q4

REPORT INFORMATION
  Report Type: Spontaneous
  Country: US (occurrence: US)
  Receive Date: 20161214
  Receipt Date: 20161214
  Transmission Date: 20170207
  Serious: Yes (Other)
  Sender: FDA-Public Use
  Company Number: US-MUNDIPHARMA DS AND PHARMACOVIGILANCE-USA-2016-0135304

PATIENT
  Sex: Male

DRUGS (2)
  1. OXYCODONE HYDROCHLORIDE. [Suspect]
     Active Substance: OXYCODONE HYDROCHLORIDE
     Indication: PAIN
     Dosage: (.5 X 5 MG) 2.5 MG, QID
     Route: 060
     Dates: start: 20161030
  2. OXYCODONE HYDROCHLORIDE. [Suspect]
     Active Substance: OXYCODONE HYDROCHLORIDE
     Dosage: (.5 X 5 MG) 2.5 MG, QID
     Dates: start: 20161030

REACTIONS (4)
  - Tachycardia [Recovered/Resolved]
  - Inadequate analgesia [Not Recovered/Not Resolved]
  - Intentional product use issue [Unknown]
  - Drug abuse [Unknown]

NARRATIVE: CASE EVENT DATE: 2016
